FAERS Safety Report 18946211 (Version 1)
Quarter: 2021Q1

REPORT INFORMATION
  Report Type: Spontaneous
  Country: US (occurrence: US)
  Receive Date: 20210226
  Receipt Date: 20210226
  Transmission Date: 20210420
  Serious: No
  Sender: FDA-Public Use
  Company Number: US-AMNEAL PHARMACEUTICALS-2020-AMRX-01770

PATIENT
  Sex: Female
  Weight: 84 kg

DRUGS (1)
  1. METFORMIN HYDROCHLORIDE. [Suspect]
     Active Substance: METFORMIN HYDROCHLORIDE
     Indication: DIABETES MELLITUS
     Dosage: 500 MILLIGRAM, 4 TABLETS, EVENING
     Route: 048
     Dates: end: 20200618

REACTIONS (3)
  - Fatigue [Unknown]
  - Flatulence [Unknown]
  - Diarrhoea [Unknown]
